FAERS Safety Report 11028397 (Version 2)
Quarter: 2015Q2

REPORT INFORMATION
  Report Type: Spontaneous
  Country: US (occurrence: US)
  Receive Date: 20150414
  Receipt Date: 20150525
  Transmission Date: 20150821
  Serious: No
  Sender: FDA-Public Use
  Company Number: US-JNJFOC-20121114234

PATIENT
  Age: 39 Year
  Sex: Female

DRUGS (1)
  1. ORTHO TRI CYCLEN [Suspect]
     Active Substance: ETHINYL ESTRADIOL\NORGESTIMATE
     Indication: PREMATURE MENOPAUSE
     Route: 048

REACTIONS (4)
  - Breast engorgement [Unknown]
  - Breast pain [Unknown]
  - Product use issue [Unknown]
  - Fluid retention [Unknown]
